FAERS Safety Report 15934240 (Version 2)
Quarter: 2019Q3

REPORT INFORMATION
  Report Type: Spontaneous
  Country: US (occurrence: US)
  Receive Date: 20190207
  Receipt Date: 20190710
  Transmission Date: 20191004
  Serious: No
  Sender: FDA-Public Use
  Company Number: US-PFIZER INC-2019048530

PATIENT
  Age: 60 Year
  Sex: Male
  Weight: 117.93 kg

DRUGS (3)
  1. VIAGRA [Concomitant]
     Active Substance: SILDENAFIL CITRATE
     Dosage: UNK
  2. ALPROSTADIL. [Suspect]
     Active Substance: ALPROSTADIL
     Indication: ERECTILE DYSFUNCTION
     Dosage: 10 IU, WHEN HAVING SEX
  3. ALPROSTADIL. [Suspect]
     Active Substance: ALPROSTADIL
     Dosage: 40 IU, WHEN HAVING SEX
     Dates: end: 2018

REACTIONS (1)
  - Drug ineffective [Not Recovered/Not Resolved]
